FAERS Safety Report 8975934 (Version 1)
Quarter: 2012Q4

REPORT INFORMATION
  Report Type: 
  Country: JP (occurrence: JP)
  Receive Date: 20121219
  Receipt Date: 20121219
  Transmission Date: 20130627
  Serious: Yes (Disabling)
  Sender: FDA-Public Use
  Company Number: JP-GLAXOSMITHKLINE-B0838919A

PATIENT
  Sex: Male

DRUGS (9)
  1. HEPSERA [Suspect]
     Indication: HEPATIC CIRRHOSIS
     Dosage: 10MG Per day
     Route: 048
     Dates: start: 20031016, end: 20120515
  2. HEPSERA [Suspect]
     Indication: HEPATIC CIRRHOSIS
     Dosage: 10MG Per day
     Route: 048
     Dates: start: 20120717
  3. ZEFIX [Suspect]
     Indication: PRODUCT USED FOR UNKNOWN INDICATION
     Dosage: 100MG Per day
     Route: 048
     Dates: start: 20001113, end: 20060926
  4. GASTER [Concomitant]
     Dosage: 20MG Twice per day
     Route: 048
  5. GASMOTIN [Concomitant]
     Dosage: 5MG Three times per day
     Route: 048
  6. GASCON [Concomitant]
     Dosage: 80MG Three times per day
     Route: 048
  7. URSO [Concomitant]
     Dosage: 200MG Three times per day
     Route: 048
  8. LIPITOR [Concomitant]
     Dosage: 5MG Per day
     Route: 048
  9. GLYCYRON [Concomitant]
     Dosage: 2IUAX Three times per day
     Route: 048

REACTIONS (12)
  - Osteomalacia [Recovering/Resolving]
  - Fanconi syndrome [Unknown]
  - Hypophosphataemia [Unknown]
  - Back pain [Unknown]
  - Musculoskeletal pain [Unknown]
  - Blood alkaline phosphatase increased [Unknown]
  - Blood bilirubin increased [Unknown]
  - Aspartate aminotransferase increased [Unknown]
  - Alanine aminotransferase increased [Unknown]
  - Blood creatinine increased [Unknown]
  - Urine potassium decreased [Unknown]
  - Urine phosphorus decreased [Unknown]
